FAERS Safety Report 9460106 (Version 2)
Quarter: 2013Q4

REPORT INFORMATION
  Report Type: Spontaneous
  Country: BE (occurrence: BE)
  Receive Date: 20130815
  Receipt Date: 20131106
  Transmission Date: 20140711
  Serious: Yes (Other)
  Sender: FDA-Public Use
  Company Number: PHHY2013BE086257

PATIENT
  Age: 77 Year
  Sex: Female

DRUGS (6)
  1. DICLOFENAC SR SANDOZ [Suspect]
     Indication: PERIARTHRITIS
     Dosage: 75 MG, BID
     Dates: start: 2012, end: 2012
  2. DICLOFENAC SR SANDOZ [Suspect]
     Indication: POLYARTHRITIS
  3. INSULIN [Concomitant]
     Indication: DIABETES MELLITUS
  4. INDERAL [Concomitant]
  5. XANAX [Concomitant]
  6. LORAMET [Concomitant]
     Indication: SOMNOLENCE

REACTIONS (7)
  - Swelling face [Recovered/Resolved]
  - Local swelling [Recovered/Resolved]
  - Swollen tongue [Recovered/Resolved]
  - Hyperglycaemia [Unknown]
  - Diabetic eye disease [Not Recovered/Not Resolved]
  - Anaemia [Unknown]
  - White blood cell count decreased [Unknown]
